FAERS Safety Report 21873466 (Version 1)
Quarter: 2023Q1

REPORT INFORMATION
  Report Type: Spontaneous
  Country: US (occurrence: None)
  Receive Date: 20230116
  Receipt Date: 20230116
  Transmission Date: 20230417
  Serious: Yes (Other)
  Sender: FDA-Public Use
  Company Number: None

PATIENT
  Age: 18 Year
  Sex: Female
  Weight: 55.35 kg

DRUGS (3)
  1. BAQSIMI [Suspect]
     Active Substance: GLUCAGON
     Indication: Hypoglycaemia
     Dosage: OTHER QUANTITY : 1 SPRAY(S);?OTHER FREQUENCY : EMERGENCY;?OTHER ROUTE : NOSE SPRAY;?
     Route: 050
     Dates: start: 20230114, end: 20230114
  2. FIASP [Concomitant]
     Active Substance: INSULIN ASPART
  3. NUVARING [Concomitant]
     Active Substance: ETHINYL ESTRADIOL\ETONOGESTREL

REACTIONS (8)
  - Pain [None]
  - Burning sensation [None]
  - Swelling face [None]
  - Headache [None]
  - Erythema [None]
  - Bedridden [None]
  - Impaired work ability [None]
  - Drug ineffective [None]

NARRATIVE: CASE EVENT DATE: 20230114
